FAERS Safety Report 8296454-3 (Version None)
Quarter: 2012Q2

REPORT INFORMATION
  Report Type: 
  Country: None (occurrence: None)
  Receive Date: 20120418
  Receipt Date: 20120412
  Transmission Date: 20120825
  Serious: Yes (Death, Hospitalization)
  Sender: FDA-Public Use
  Company Number: JP-PFIZER INC-2011290111

PATIENT
  Age: 74 Year
  Sex: Male

DRUGS (8)
  1. CANDESARTAN CILEXETIL [Concomitant]
     Dosage: 2 MG, 1X/DAY
     Route: 048
     Dates: end: 20111010
  2. ZOLOFT [Suspect]
     Dosage: 50 MG, 1X/DAY
     Route: 048
     Dates: start: 20110912, end: 20111010
  3. ARICEPT [Suspect]
     Dosage: 3 MG, 1X/DAY
     Route: 048
     Dates: start: 20110921, end: 20111004
  4. MAGMITT [Concomitant]
     Dosage: 0.5 G, 3X/DAY
     Route: 048
     Dates: end: 20111010
  5. ARICEPT [Suspect]
     Dosage: 5 MG, 1X/DAY
     Route: 048
     Dates: start: 20111005, end: 20111010
  6. SENNOSIDE A+B CALCIUM [Concomitant]
     Dosage: 24 MG, 1X/DAY
     Route: 048
     Dates: end: 20111010
  7. RHYTHMY [Concomitant]
     Dosage: 2 MG, 1X/DAY
     Route: 048
     Dates: end: 20111010
  8. GASMOTIN [Concomitant]
     Dosage: 5 MG, 3X/DAY
     Route: 048
     Dates: end: 20111010

REACTIONS (10)
  - GENERAL PHYSICAL HEALTH DETERIORATION [None]
  - MUSCLE TIGHTNESS [None]
  - SHOCK [None]
  - RESPIRATORY DISORDER [None]
  - CIRCULATORY COLLAPSE [None]
  - HYPERNATRAEMIA [None]
  - DEHYDRATION [None]
  - PYREXIA [None]
  - DYSPHAGIA [None]
  - LIVER DISORDER [None]
